FAERS Safety Report 5493427-0 (Version None)
Quarter: 2007Q4

REPORT INFORMATION
  Report Type: 
  Country: None (occurrence: None)
  Receive Date: 20071023
  Receipt Date: 20071017
  Transmission Date: 20080405
  Serious: Yes (Other)
  Sender: FDA-Public Use
  Company Number: BR-SANOFI-SYNTHELABO-A01200711825

PATIENT

DRUGS (1)
  1. ELOXATIN [Suspect]
     Route: 042

REACTIONS (1)
  - LARYNGOSPASM [None]
